FAERS Safety Report 14685794 (Version 1)
Quarter: 2018Q1

REPORT INFORMATION
  Report Type: Spontaneous
  Country: US (occurrence: US)
  Receive Date: 20180326
  Receipt Date: 20180326
  Transmission Date: 20180509
  Serious: Yes (Other)
  Sender: FDA-Public Use
  Company Number: None

PATIENT
  Age: 23 Year
  Sex: Female
  Weight: 73.35 kg

DRUGS (25)
  1. VENTOLIN [Concomitant]
     Active Substance: ALBUTEROL SULFATE
  2. TOPIRAMATE. [Concomitant]
     Active Substance: TOPIRAMATE
  3. KETOROLAC [Concomitant]
     Active Substance: KETOROLAC\KETOROLAC TROMETHAMINE
  4. SHOPKO BRAND PRENATAL VITAMIN (COPPER FREE) [Concomitant]
  5. FISH OIL + VITAMIN D [Concomitant]
  6. SUPER B COMPLEX [Concomitant]
     Active Substance: CYANOCOBALAMIN\DEXPANTHENOL\NIACINAMIDE\PYRIDOXINE HYDROCHLORIDE\RIBOFLAVIN 5^-PHOSPHATE SODIUM\THIAMINE HYDROCHLORIDE\VITAMIN B COMPLEX
  7. LEVOTHYROXINE. [Concomitant]
     Active Substance: LEVOTHYROXINE
  8. BUPROPION. [Concomitant]
     Active Substance: BUPROPION
  9. FLUOXETINE [Concomitant]
     Active Substance: FLUOXETINE HYDROCHLORIDE
  10. PROCHLORPERAZINE. [Concomitant]
     Active Substance: PROCHLORPERAZINE
  11. MEGAFOOD BLOOD BUILDER [Concomitant]
  12. LIDOCAINE. [Concomitant]
     Active Substance: LIDOCAINE
  13. DICLOFENAC [Concomitant]
     Active Substance: DICLOFENAC
  14. BISACODYL. [Concomitant]
     Active Substance: BISACODYL
  15. PROBIOTIC [Concomitant]
     Active Substance: PROBIOTICS NOS
  16. ZOMIG [Suspect]
     Active Substance: ZOLMITRIPTAN
     Indication: MIGRAINE WITH AURA
     Dosage: ?          QUANTITY:1 SPRAY(S);OTHER ROUTE:SPRAYED INTRANASALLY?
     Route: 045
  17. LAMOTRIGINE. [Concomitant]
     Active Substance: LAMOTRIGINE
  18. GABAPENTIN. [Concomitant]
     Active Substance: GABAPENTIN
  19. METHYLPHENIDATE. [Concomitant]
     Active Substance: METHYLPHENIDATE
  20. ZOLMITRIPTAN. [Concomitant]
     Active Substance: ZOLMITRIPTAN
  21. AZITHROMYCIN ANHYDROUS. [Concomitant]
     Active Substance: AZITHROMYCIN ANHYDROUS
  22. LARIN [Concomitant]
  23. ALBUTEROL. [Concomitant]
     Active Substance: ALBUTEROL
  24. SERRAPEPTASE [Concomitant]
     Active Substance: SERRAPEPTASE
  25. ACETAMINOPHEN. [Concomitant]
     Active Substance: ACETAMINOPHEN

REACTIONS (5)
  - Dysgeusia [None]
  - Migraine [None]
  - Drug ineffective [None]
  - Nasal congestion [None]
  - Epistaxis [None]

NARRATIVE: CASE EVENT DATE: 20180316
